FAERS Safety Report 25427807 (Version 1)
Quarter: 2025Q2

REPORT INFORMATION
  Report Type: Spontaneous
  Country: ES (occurrence: ES)
  Receive Date: 20250612
  Receipt Date: 20250612
  Transmission Date: 20250717
  Serious: Yes (Hospitalization)
  Sender: PFIZER
  Company Number: None

PATIENT
  Age: 64 Year
  Sex: Female

DRUGS (9)
  1. MEROPENEM [Suspect]
     Active Substance: MEROPENEM
     Indication: Abdominal infection
     Dosage: 1 G, 3X/DAY (EVERY 8 HOURS)
     Route: 042
     Dates: start: 20240128, end: 20240206
  2. DAPTOMYCIN [Suspect]
     Active Substance: DAPTOMYCIN
     Indication: Abdominal infection
     Dosage: 800 MG, 1X/DAY (EVERY 24 HRS)
     Route: 042
     Dates: start: 20240127, end: 20240206
  3. ACETAMINOPHEN [Concomitant]
     Active Substance: ACETAMINOPHEN
     Indication: Pyrexia
     Dosage: 1 G, 3X/DAY (EVERY 8 HOURS)
     Route: 042
     Dates: start: 20240126, end: 20240218
  4. ENOXAPARIN SODIUM [Concomitant]
     Active Substance: ENOXAPARIN SODIUM
     Indication: Prophylaxis
     Dosage: 40 MG, 1X/DAY (AT 8PM)
     Route: 058
     Dates: start: 20240127, end: 20240226
  5. OMEPRAZOLE [Concomitant]
     Active Substance: OMEPRAZOLE
     Indication: Prophylaxis
     Dosage: 20 MG, 1X/DAY
     Route: 048
     Dates: start: 20240126
  6. AMITRIPTYLINE HYDROCHLORIDE [Concomitant]
     Active Substance: AMITRIPTYLINE HYDROCHLORIDE
     Indication: Fibromyalgia
     Dosage: 25 MG, 1X/DAY
     Route: 048
     Dates: start: 20240127
  7. LORMETAZEPAM [Concomitant]
     Active Substance: LORMETAZEPAM
     Indication: Depression
     Dosage: 2 MG, 1X/DAY (AT 11:00 PM)
     Route: 048
     Dates: start: 20110315
  8. PIPERACILLIN SODIUM\TAZOBACTAM SODIUM [Concomitant]
     Active Substance: PIPERACILLIN SODIUM\TAZOBACTAM SODIUM
     Indication: Abdominal infection
     Dosage: 4 G (1 VIAL), 4X/DAY (EVERY 6 HOURS)
     Route: 042
     Dates: start: 20240127, end: 20240128
  9. CEFTRIAXONE [Concomitant]
     Active Substance: CEFTRIAXONE
     Indication: Abdominal infection
     Dosage: 2 G (1 VIAL), 1X/DAY (AT 9:00 AM)
     Route: 042
     Dates: start: 20240126, end: 20240126

REACTIONS (1)
  - Hepatic cytolysis [Recovered/Resolved]

NARRATIVE: CASE EVENT DATE: 20240129
